FAERS Safety Report 8566760 (Version 4)
Quarter: 2014Q2

REPORT INFORMATION
  Report Type: Spontaneous
  Country: US (occurrence: US)
  Receive Date: 20120517
  Receipt Date: 20140529
  Transmission Date: 20141212
  Serious: Yes (Other)
  Sender: FDA-Public Use
  Company Number: US-ROCHE-1066890

PATIENT
  Age: 57 Year
  Sex: Female
  Weight: 82.63 kg

DRUGS (8)
  1. ACCUTANE [Suspect]
     Indication: ACNE
     Route: 048
     Dates: start: 199403
  2. ACCUTANE [Suspect]
     Route: 048
     Dates: start: 19940408, end: 19940826
  3. ACCUTANE [Suspect]
     Route: 048
     Dates: end: 199409
  4. ACCUTANE [Suspect]
     Route: 048
     Dates: start: 20050414, end: 20050515
  5. ACCUTANE [Suspect]
     Route: 048
     Dates: end: 200508
  6. AMNESTEEM [Suspect]
     Indication: ACNE
     Route: 065
     Dates: start: 20050314, end: 20050414
  7. SOTRET [Suspect]
     Indication: ACNE
     Route: 065
     Dates: start: 20050418, end: 20050518
  8. SOTRET [Suspect]
     Route: 065
     Dates: start: 20050721, end: 20050821

REACTIONS (11)
  - Crohn^s disease [Unknown]
  - Colitis ulcerative [Unknown]
  - Inflammatory bowel disease [Unknown]
  - Irritable bowel syndrome [Unknown]
  - Diverticulitis [Unknown]
  - Depression [Not Recovered/Not Resolved]
  - Large intestine polyp [Unknown]
  - Osteoporosis [Unknown]
  - Chest pain [Unknown]
  - Dizziness [Unknown]
  - Myalgia [Unknown]
